FAERS Safety Report 10102810 (Version 1)
Quarter: 2014Q2

REPORT INFORMATION
  Report Type: Spontaneous
  Country: US (occurrence: US)
  Receive Date: 20140424
  Receipt Date: 20140424
  Transmission Date: 20141212
  Serious: Yes (Other)
  Sender: FDA-Public Use
  Company Number: US-BRISTOL-MYERS SQUIBB COMPANY-20550091

PATIENT
  Age: 59 Year
  Sex: Male
  Weight: 104.31 kg

DRUGS (4)
  1. ELIQUIS [Suspect]
     Dates: start: 201312
  2. METOPROLOL [Concomitant]
  3. LISINOPRIL [Concomitant]
  4. PANTOPRAZOLE [Concomitant]

REACTIONS (1)
  - Transient ischaemic attack [Unknown]
